FAERS Safety Report 7012599-X (Version None)
Quarter: 2010Q3

REPORT INFORMATION
  Report Type: 
  Country: None (occurrence: None)
  Receive Date: 20100923
  Receipt Date: 20100923
  Transmission Date: 20110219
  Serious: Yes (Disabling)
  Sender: FDA-Public Use
  Company Number: None

PATIENT
  Sex: Female
  Weight: 87.9978 kg

DRUGS (1)
  1. ATRIPLA [Suspect]
     Indication: ANOSMIA
     Dosage: ONE TAB HS OR DAILY PO
     Route: 048
     Dates: start: 20100401, end: 20100530

REACTIONS (2)
  - ANOSMIA [None]
  - DYSGEUSIA [None]
